FAERS Safety Report 4814872-X (Version None)
Quarter: 2005Q4

REPORT INFORMATION
  Report Type: 
  Country: None (occurrence: None)
  Receive Date: 20051028
  Receipt Date: 20051019
  Transmission Date: 20060501
  Serious: Yes (Hospitalization)
  Sender: FDA-Public Use
  Company Number: JP-ROCHE-421668

PATIENT
  Age: 70 Year
  Sex: Male

DRUGS (4)
  1. PANALDINE [Suspect]
     Indication: THROMBOSIS PROPHYLAXIS
     Dosage: SECOND INDICATION: PERCUTANEOUS CORONARY INTERVENTION.
     Route: 048
     Dates: start: 20050715, end: 20050822
  2. ISOSORBIDE MONONITRATE [Concomitant]
     Route: 048
  3. ADALAT [Concomitant]
     Route: 048
  4. ASPIRIN [Concomitant]
     Route: 048

REACTIONS (4)
  - ANOREXIA [None]
  - HYPERBILIRUBINAEMIA [None]
  - MALAISE [None]
  - XANTHOPSIA [None]
